FAERS Safety Report 16101212 (Version 1)
Quarter: 2019Q1

REPORT INFORMATION
  Report Type: Spontaneous
  Country: TW (occurrence: TW)
  Receive Date: 20190321
  Receipt Date: 20190321
  Transmission Date: 20190418
  Serious: Yes (Hospitalization, Other)
  Sender: FDA-Public Use
  Company Number: TW-PFIZER INC-2019117490

PATIENT
  Age: 80 Year
  Sex: Female

DRUGS (7)
  1. XALKORI [Suspect]
     Active Substance: CRIZOTINIB
     Dosage: 3 DF PER 2 DAYS
     Dates: start: 2017
  2. XALKORI [Suspect]
     Active Substance: CRIZOTINIB
     Dosage: 1 DF, QD
     Dates: start: 2016
  3. XALKORI [Suspect]
     Active Substance: CRIZOTINIB
     Dosage: 1 DF, QD
     Dates: start: 2018
  4. XALKORI [Suspect]
     Active Substance: CRIZOTINIB
     Dosage: 3 DF PER 2 DAYS
     Dates: start: 2018
  5. XALKORI [Suspect]
     Active Substance: CRIZOTINIB
     Dosage: 3 DF PER 2 DAYS
     Dates: start: 2018
  6. XALKORI [Suspect]
     Active Substance: CRIZOTINIB
     Indication: LUNG ADENOCARCINOMA STAGE IV
     Dosage: 1 DF, BID
     Dates: start: 20160902
  7. XALKORI [Suspect]
     Active Substance: CRIZOTINIB
     Dosage: 1 DF, QD
     Dates: start: 2017

REACTIONS (12)
  - Cerebellar infarction [Unknown]
  - Influenza [Unknown]
  - Diarrhoea [Unknown]
  - Vomiting [Unknown]
  - Cerebral infarction [Unknown]
  - Nausea [Unknown]
  - Constipation [Unknown]
  - Atrial fibrillation [Unknown]
  - Hepatitis acute [Recovered/Resolved]
  - Hypoglycaemia [Unknown]
  - Angina pectoris [Unknown]
  - Decreased appetite [Unknown]

NARRATIVE: CASE EVENT DATE: 201808
